FAERS Safety Report 11955728 (Version 2)
Quarter: 2016Q1

REPORT INFORMATION
  Report Type: Report from Study
  Country: US (occurrence: US)
  Receive Date: 20160125
  Receipt Date: 20160202
  Transmission Date: 20160526
  Serious: No
  Sender: FDA-Public Use
  Company Number: US-ABBVIE-15K-163-1348328-00

PATIENT
  Age: 16 Year
  Sex: Male

DRUGS (3)
  1. PREDNISONE. [Suspect]
     Active Substance: PREDNISONE
     Indication: CROHN^S DISEASE
     Route: 065
     Dates: start: 201411
  2. HUMIRA [Suspect]
     Active Substance: ADALIMUMAB
     Indication: CROHN^S DISEASE
     Route: 065
     Dates: start: 20140701
  3. 6-MP [Suspect]
     Active Substance: MERCAPTOPURINE
     Indication: CROHN^S DISEASE
     Route: 065
     Dates: start: 201411

REACTIONS (4)
  - Haematochezia [Recovered/Resolved]
  - Migraine [Not Recovered/Not Resolved]
  - Lymphadenopathy [Recovered/Resolved]
  - Crohn^s disease [Recovered/Resolved]

NARRATIVE: CASE EVENT DATE: 20140901
